FAERS Safety Report 21786335 (Version 1)
Quarter: 2022Q4

REPORT INFORMATION
  Report Type: Report from Study
  Country: US (occurrence: US)
  Receive Date: 20221228
  Receipt Date: 20221228
  Transmission Date: 20230113
  Serious: No
  Sender: FDA-Public Use
  Company Number: US-ABBVIE-22K-163-4524371-00

PATIENT
  Sex: Female

DRUGS (3)
  1. SKYRIZI [Suspect]
     Active Substance: RISANKIZUMAB-RZAA
     Indication: Psoriasis
     Dosage: WEEK 0, FORM STRENGTH: 150 MILLIGRAM
     Route: 058
     Dates: start: 202207
  2. SKYRIZI [Suspect]
     Active Substance: RISANKIZUMAB-RZAA
     Indication: Psoriasis
     Dosage: WEEK 4, FORM STRENGTH: 150 MILLIGRAM
     Route: 058
     Dates: start: 20220829
  3. SKYRIZI [Suspect]
     Active Substance: RISANKIZUMAB-RZAA
     Indication: Psoriatic arthropathy

REACTIONS (5)
  - Skin exfoliation [Unknown]
  - Headache [Unknown]
  - Oral herpes [Recovered/Resolved]
  - Psoriasis [Recovered/Resolved]
  - Urinary tract infection [Unknown]
